FAERS Safety Report 24751830 (Version 1)
Quarter: 2024Q4

REPORT INFORMATION
  Report Type: Spontaneous
  Country: US (occurrence: US)
  Receive Date: 20241219
  Receipt Date: 20241219
  Transmission Date: 20250114
  Serious: No
  Sender: PACIRA
  Company Number: US-ORG100016242-2024000495

PATIENT
  Sex: Male

DRUGS (1)
  1. EXPAREL [Suspect]
     Active Substance: BUPIVACAINE
     Indication: Ankle operation
     Dosage: NOT PROVIDED
     Route: 065
     Dates: start: 20240717, end: 20240717

REACTIONS (3)
  - Therapeutic product effect prolonged [Unknown]
  - Hypoaesthesia [Recovering/Resolving]
  - Swelling [Recovering/Resolving]
